FAERS Safety Report 6941793-9 (Version None)
Quarter: 2010Q3

REPORT INFORMATION
  Report Type: 
  Country: None (occurrence: None)
  Receive Date: 20100826
  Receipt Date: 20100817
  Transmission Date: 20110219
  Serious: Yes (Other)
  Sender: FDA-Public Use
  Company Number: CA-PFIZER INC-2010094691

PATIENT
  Age: 56 Year
  Sex: Male

DRUGS (8)
  1. CHAMPIX [Suspect]
     Indication: SMOKING CESSATION THERAPY
     Dosage: 0.5 MG, 1X/DAY
     Route: 048
     Dates: start: 20100713
  2. CHAMPIX [Suspect]
     Dosage: 0.5 MG, 2X/DAY
     Route: 048
     Dates: start: 20100716
  3. CHAMPIX [Suspect]
     Dosage: 1 MG, 2X/DAY
     Route: 048
     Dates: start: 20100720
  4. ACETYLSALICYLIC ACID ENTERIC COATED [Suspect]
     Indication: ATHEROSCLEROSIS PROPHYLAXIS
     Dosage: 80 MG, 1X/DAY
     Route: 048
     Dates: start: 20100726, end: 20100727
  5. CLONAZEPAM [Concomitant]
     Indication: MENTAL DISORDER
     Dosage: 0.5 MG, 3X/DAY
  6. DOXEPIN [Concomitant]
     Indication: MENTAL DISORDER
     Dosage: 50 MG, 1X/DAY AT BEDTIME
  7. SEROQUEL [Concomitant]
     Indication: MENTAL DISORDER
     Dosage: 150 MG, 1X/DAY AT BEDTIME
  8. NITRO-SPRAY [Concomitant]
     Indication: ANGINA PECTORIS
     Dosage: UNK

REACTIONS (4)
  - DYSPEPSIA [None]
  - FAECES DISCOLOURED [None]
  - GASTROINTESTINAL HAEMORRHAGE [None]
  - PEPTIC ULCER [None]
